FAERS Safety Report 9969332 (Version 3)
Quarter: 2014Q2

REPORT INFORMATION
  Report Type: Report from Study
  Country: US (occurrence: US)
  Receive Date: 20140306
  Receipt Date: 20140617
  Transmission Date: 20141212
  Serious: Yes (Hospitalization)
  Sender: FDA-Public Use
  Company Number: US-BIOGENIDEC-2014BI019995

PATIENT
  Age: 54 Year
  Sex: Female

DRUGS (1)
  1. TYSABRI [Suspect]
     Indication: MULTIPLE SCLEROSIS
     Route: 042
     Dates: start: 20120328, end: 201401

REACTIONS (8)
  - Joint dislocation [Unknown]
  - Fall [Not Recovered/Not Resolved]
  - Mobility decreased [Unknown]
  - General physical health deterioration [Unknown]
  - Fibula fracture [Not Recovered/Not Resolved]
  - Tibia fracture [Not Recovered/Not Resolved]
  - Urinary tract infection [Recovered/Resolved]
  - Decreased immune responsiveness [Not Recovered/Not Resolved]
